FAERS Safety Report 11053776 (Version 3)
Quarter: 2015Q2

REPORT INFORMATION
  Report Type: Report from Study
  Country: DE (occurrence: DE)
  Receive Date: 20150421
  Receipt Date: 20150508
  Transmission Date: 20150821
  Serious: Yes (Hospitalization)
  Sender: FDA-Public Use
  Company Number: PHHO2015DE006535

PATIENT
  Age: 4 Year
  Sex: Male
  Weight: 14 kg

DRUGS (8)
  1. METAMIZOLE [Concomitant]
     Active Substance: METAMIZOLE
     Indication: ARTHRALGIA
  2. KEVATRIL [Concomitant]
     Active Substance: GRANISETRON HYDROCHLORIDE
     Indication: PROPHYLAXIS
     Dosage: 1 MG, QD
     Route: 048
     Dates: start: 20150402
  3. IBUPROFEN. [Concomitant]
     Active Substance: IBUPROFEN
     Indication: BONE PAIN
     Dosage: UNK
     Route: 065
     Dates: start: 20150409, end: 20150416
  4. METAMIZOLE [Concomitant]
     Active Substance: METAMIZOLE
     Indication: BONE PAIN
     Dosage: UNK
     Route: 065
     Dates: start: 20150401, end: 20150416
  5. IBUPROFEN. [Concomitant]
     Active Substance: IBUPROFEN
     Indication: ARTHRALGIA
  6. COTRIM E [Concomitant]
     Indication: ANTIFUNGAL PROPHYLAXIS
     Dosage: 2.5 ML, BID
     Route: 048
     Dates: start: 2013
  7. FLUCONAZOLE. [Concomitant]
     Active Substance: FLUCONAZOLE
     Indication: ANTIFUNGAL PROPHYLAXIS
     Dosage: 20 MG, QD
     Route: 048
     Dates: start: 2013
  8. LDK378 [Suspect]
     Active Substance: CERITINIB
     Indication: NON-SMALL CELL LUNG CANCER
     Dosage: 200 MG, QD
     Route: 048
     Dates: start: 20150402

REACTIONS (1)
  - Anaemia [Recovering/Resolving]

NARRATIVE: CASE EVENT DATE: 20150416
